FAERS Safety Report 9202112 (Version 1)
Quarter: 2013Q2

REPORT INFORMATION
  Report Type: Spontaneous
  Country: FR (occurrence: FR)
  Receive Date: 20130401
  Receipt Date: 20130401
  Transmission Date: 20140414
  Serious: Yes (Hospitalization)
  Sender: FDA-Public Use
  Company Number: FR-BRISTOL-MYERS SQUIBB COMPANY-18706739

PATIENT
  Age: 69 Year
  Sex: Female

DRUGS (15)
  1. APROVEL [Suspect]
     Route: 048
     Dates: end: 20130127
  2. COUMADINE [Suspect]
     Dates: end: 20130127
  3. PARACETAMOL [Suspect]
     Dates: end: 20130127
  4. EUPANTOL [Suspect]
     Dates: end: 20130127
  5. CACIT D3 [Suspect]
     Dates: end: 20130127
  6. TRAMADOL [Suspect]
     Dates: end: 20130127
  7. KALEORID [Suspect]
     Dates: end: 20130127
  8. FORTEO [Suspect]
     Route: 058
     Dates: start: 20121214, end: 20130127
  9. DISCOTRINE [Suspect]
     Route: 062
     Dates: end: 20130127
  10. ORACILLINE [Concomitant]
  11. TAHOR [Concomitant]
  12. HYDROCORTISONE [Concomitant]
  13. FORLAX [Concomitant]
     Dosage: STOPPED ON UNK DATE
  14. INDOCOLLYRE [Concomitant]
  15. MYDRIATICUM [Concomitant]

REACTIONS (1)
  - Idiopathic thrombocytopenic purpura [Recovered/Resolved]
